FAERS Safety Report 5014729-8 (Version None)
Quarter: 2006Q2

REPORT INFORMATION
  Report Type: 
  Country: None (occurrence: None)
  Receive Date: 20060531
  Receipt Date: 20060428
  Transmission Date: 20061013
  Serious: Yes (Other)
  Sender: FDA-Public Use
  Company Number: JP-JPN-A200601424

PATIENT
  Age: 27 Year
  Sex: Female

DRUGS (3)
  1. PAXIL [Suspect]
     Indication: PATHOLOGICAL GAMBLING
     Dosage: 40MG PER DAY
     Route: 048
  2. MEILAX [Concomitant]
     Route: 048
  3. UNKNOWN [Concomitant]
     Route: 065

REACTIONS (1)
  - SELF MUTILATION [None]
